FAERS Safety Report 6926464-7 (Version None)
Quarter: 2010Q3

REPORT INFORMATION
  Report Type: 
  Country: None (occurrence: None)
  Receive Date: 20100816
  Receipt Date: 20100716
  Transmission Date: 20110219
  Serious: No
  Sender: FDA-Public Use
  Company Number: US-BAYER-201035522GPV

PATIENT
  Age: 41 Year
  Sex: Female

DRUGS (5)
  1. EXTAVIA [Suspect]
     Indication: MULTIPLE SCLEROSIS
     Route: 058
     Dates: start: 20100322
  2. SYNTHROID [Concomitant]
     Route: 065
  3. PROVIGIL [Concomitant]
     Route: 065
  4. FOLIC ACID [Concomitant]
     Route: 065
  5. IMITREX [Concomitant]
     Route: 045

REACTIONS (2)
  - AGEUSIA [None]
  - ANOSMIA [None]
